FAERS Safety Report 5774504-3 (Version None)
Quarter: 2008Q2

REPORT INFORMATION
  Report Type: 
  Country: None (occurrence: None)
  Receive Date: 20080616
  Receipt Date: 20080604
  Transmission Date: 20081010
  Serious: Yes (Death, Other)
  Sender: FDA-Public Use
  Company Number: TH-PFIZER INC-2008048181

PATIENT
  Age: 40 Year
  Sex: Male

DRUGS (4)
  1. DILANTIN [Suspect]
     Indication: OLIGODENDROGLIOMA
     Route: 048
  2. DILANTIN [Suspect]
     Indication: OLIGODENDROGLIOMA
     Route: 051
  3. VITAMIN B 1-6-12 [Concomitant]
  4. ENCEPHABOL [Concomitant]

REACTIONS (4)
  - CONVULSION [None]
  - HEPATIC FAILURE [None]
  - JAUNDICE [None]
  - RASH MACULO-PAPULAR [None]
